FAERS Safety Report 5167223-8 (Version None)
Quarter: 2006Q4

REPORT INFORMATION
  Report Type: 
  Country: None (occurrence: None)
  Receive Date: 20061130
  Receipt Date: 20061121
  Transmission Date: 20070319
  Serious: Yes (Other)
  Sender: FDA-Public Use
  Company Number: 2006136582

PATIENT
  Age: 32 Year
  Sex: Female
  Weight: 55 kg

DRUGS (1)
  1. LYRICA [Suspect]
     Indication: GENERALISED ANXIETY DISORDER
     Dosage: 75 MG (1 D), ORAL
     Route: 048

REACTIONS (5)
  - ALCOHOL USE [None]
  - ANXIETY [None]
  - CONDITION AGGRAVATED [None]
  - HALLUCINATION, VISUAL [None]
  - SUICIDAL IDEATION [None]
